FAERS Safety Report 16894466 (Version 7)
Quarter: 2025Q3

REPORT INFORMATION
  Report Type: Spontaneous
  Country: US (occurrence: US)
  Receive Date: 20191008
  Receipt Date: 20250815
  Transmission Date: 20251020
  Serious: No
  Sender: PFIZER
  Company Number: US-PFIZER INC-2019396566

PATIENT
  Age: 69 Year
  Sex: Female

DRUGS (2)
  1. PREMPRO [Suspect]
     Active Substance: ESTROGENS, CONJUGATED\MEDROXYPROGESTERONE ACETATE
     Indication: Hot flush
     Dosage: 1 DF, DAILY (PREMPRO 6.25/2.5)
     Route: 048
  2. PREMPRO [Suspect]
     Active Substance: ESTROGENS, CONJUGATED\MEDROXYPROGESTERONE ACETATE
     Indication: Night sweats
     Dosage: 0.625- 2.5 MG TABLET 1 TABLET ORALLY ONCE A DAY
     Route: 048

REACTIONS (1)
  - Product prescribing issue [Unknown]
